FAERS Safety Report 4785371-9 (Version None)
Quarter: 2005Q4

REPORT INFORMATION
  Report Type: 
  Country: None (occurrence: None)
  Receive Date: 20051003
  Receipt Date: 20050901
  Transmission Date: 20060501
  Serious: Yes (Hospitalization)
  Sender: FDA-Public Use
  Company Number: FR-BRISTOL-MYERS SQUIBB COMPANY-13102785

PATIENT
  Age: 59 Year
  Sex: Female

DRUGS (5)
  1. VASTEN TABS [Suspect]
     Route: 048
  2. MEDIATOR [Suspect]
     Route: 048
  3. LEVOTHYROX [Suspect]
     Dosage: DOSAGE FORM = UG
     Route: 048
     Dates: start: 20040101
  4. TEMESTA [Suspect]
     Route: 048
  5. VASTAREL [Suspect]
     Route: 048

REACTIONS (2)
  - PAPILLOEDEMA [None]
  - VISUAL ACUITY REDUCED [None]
